FAERS Safety Report 8184669-4 (Version None)
Quarter: 2012Q1

REPORT INFORMATION
  Report Type: 
  Country: None (occurrence: None)
  Receive Date: 20120305
  Receipt Date: 20120220
  Transmission Date: 20120608
  Serious: Yes (Other)
  Sender: FDA-Public Use
  Company Number: JP-ASTRAZENECA-2012SE10168

PATIENT
  Age: 81 Year
  Sex: Male

DRUGS (9)
  1. SEROQUEL [Suspect]
     Route: 048
  2. EPLERENONE [Concomitant]
     Route: 048
  3. SEROQUEL [Suspect]
     Route: 048
  4. ZOLPIDEM [Concomitant]
     Route: 048
  5. AMLODIPINE [Concomitant]
     Route: 048
  6. CARVEDILOL [Concomitant]
     Route: 048
  7. SEROQUEL [Suspect]
     Route: 048
  8. OLMESARTAN MEDOXOMIL [Concomitant]
     Route: 048
  9. TRICHLORMETHIAZIDE [Concomitant]
     Route: 048

REACTIONS (1)
  - SOMNOLENCE [None]
